FAERS Safety Report 4373764-3 (Version None)
Quarter: 2004Q2

REPORT INFORMATION
  Report Type: 
  Country: None (occurrence: None)
  Receive Date: 20040603
  Receipt Date: 20040524
  Transmission Date: 20050107
  Serious: Yes (Life-Threatening)
  Sender: FDA-Public Use
  Company Number: OMPQ-NO-0405L-0415 (0)

PATIENT
  Age: 14 Year
  Sex: Female

DRUGS (1)
  1. OMNIPAQUE 140 [Suspect]
     Indication: SCOLIOSIS SURGERY
     Dosage: 10 ML, SINGLE DOSE, I.T.
     Route: 037
     Dates: start: 20040101, end: 20040101

REACTIONS (19)
  - ACIDOSIS [None]
  - ANURIA [None]
  - BLOOD POTASSIUM INCREASED [None]
  - BLOOD PRESSURE DECREASED [None]
  - DISSEMINATED INTRAVASCULAR COAGULATION [None]
  - HAEMODYNAMIC INSTABILITY [None]
  - HEART RATE INCREASED [None]
  - HYPERTHERMIA MALIGNANT [None]
  - METABOLIC DISORDER [None]
  - MIGRATION OF IMPLANT [None]
  - MOVEMENT DISORDER [None]
  - MYOCLONUS [None]
  - NEUROLOGICAL EXAMINATION ABNORMAL [None]
  - PROCEDURAL COMPLICATION [None]
  - PYREXIA [None]
  - RENAL FAILURE ACUTE [None]
  - RESPIRATORY RATE INCREASED [None]
  - RHABDOMYOLYSIS [None]
  - SENSORY DISTURBANCE [None]
